FAERS Safety Report 6019518-3 (Version None)
Quarter: 2008Q4

REPORT INFORMATION
  Report Type: 
  Country: None (occurrence: None)
  Receive Date: 20081224
  Receipt Date: 20081215
  Transmission Date: 20090506
  Serious: Yes (Hospitalization, Other)
  Sender: FDA-Public Use
  Company Number: GB-ASTRAZENECA-2008GB02337

PATIENT
  Age: 41 Year
  Sex: Male

DRUGS (2)
  1. SEROQUEL [Suspect]
     Dosage: 750 MG
     Route: 048
  2. SULPIRIDE [Concomitant]
     Dosage: 200 MG

REACTIONS (2)
  - LOWER RESPIRATORY TRACT INFECTION [None]
  - RESPIRATORY FAILURE [None]
